FAERS Safety Report 24847285 (Version 1)
Quarter: 2025Q1

REPORT INFORMATION
  Report Type: Spontaneous
  Country: US (occurrence: US)
  Receive Date: 20250116
  Receipt Date: 20250116
  Transmission Date: 20250408
  Serious: Yes (Other)
  Sender: STRIDES
  Company Number: US-STRIDES ARCOLAB LIMITED-2024SP013117

PATIENT
  Age: 65 Year
  Sex: Male

DRUGS (12)
  1. PREDNISOLONE [Suspect]
     Active Substance: PREDNISOLONE
     Indication: Dermatophytosis
     Route: 048
  2. PREDNISOLONE [Suspect]
     Active Substance: PREDNISOLONE
     Indication: Trichophytosis
     Route: 048
  3. FLUOCINONIDE [Suspect]
     Active Substance: FLUOCINONIDE
     Indication: Dermatophytosis
     Route: 061
  4. FLUOCINONIDE [Suspect]
     Active Substance: FLUOCINONIDE
     Indication: Trichophytosis
  5. CLOBETASOL [Suspect]
     Active Substance: CLOBETASOL
     Indication: Dermatophytosis
     Route: 061
  6. CLOBETASOL [Suspect]
     Active Substance: CLOBETASOL
     Indication: Trichophytosis
  7. TERBINAFINE [Concomitant]
     Active Substance: TERBINAFINE
     Indication: Dermatophytosis
     Route: 048
  8. TERBINAFINE [Concomitant]
     Active Substance: TERBINAFINE
     Indication: Trichophytosis
     Route: 048
  9. CLOTRIMAZOLE [Concomitant]
     Active Substance: CLOTRIMAZOLE
     Indication: Dermatophytosis
     Route: 061
  10. CLOTRIMAZOLE [Concomitant]
     Active Substance: CLOTRIMAZOLE
     Indication: Trichophytosis
  11. GRISEOFULVIN [Concomitant]
     Active Substance: GRISEOFULVIN
     Indication: Dermatophytosis
     Route: 048
  12. GRISEOFULVIN [Concomitant]
     Active Substance: GRISEOFULVIN
     Indication: Trichophytosis

REACTIONS (1)
  - Drug ineffective [Unknown]
